FAERS Safety Report 9354455 (Version 4)
Quarter: 2013Q3

REPORT INFORMATION
  Report Type: Report from Study
  Country: DE (occurrence: DE)
  Receive Date: 20130618
  Receipt Date: 20130724
  Transmission Date: 20140515
  Serious: Yes (Life-Threatening, Hospitalization, Other)
  Sender: FDA-Public Use
  Company Number: DE-BAXTER-2013BAX021918

PATIENT
  Age: 34 Year
  Sex: Male

DRUGS (25)
  1. ENDOXAN 1G [Suspect]
     Indication: B-CELL LYMPHOMA
     Route: 042
     Dates: start: 20130404
  2. ENDOXAN 1G [Suspect]
     Route: 042
     Dates: start: 20130516
  3. ENDOXAN 1G [Suspect]
     Route: 042
     Dates: start: 20130610
  4. RITUXIMAB [Suspect]
     Indication: B-CELL LYMPHOMA
     Route: 042
     Dates: start: 20130404
  5. RITUXIMAB [Suspect]
     Dosage: 780 ML
     Route: 042
     Dates: start: 20130516
  6. RITUXIMAB [Suspect]
     Dosage: 390 ML
     Route: 042
     Dates: start: 20130610
  7. DOXORUBICIN [Suspect]
     Indication: B-CELL LYMPHOMA
     Route: 042
     Dates: start: 20130404
  8. DOXORUBICIN [Suspect]
     Route: 042
     Dates: start: 20130516
  9. DOXORUBICIN [Suspect]
     Route: 042
     Dates: start: 20130610
  10. VINCRISTINE [Suspect]
     Indication: B-CELL LYMPHOMA
     Route: 040
     Dates: start: 20130404
  11. VINCRISTINE [Suspect]
     Route: 040
     Dates: start: 20130516
  12. VINCRISTINE [Suspect]
     Route: 040
     Dates: start: 20130610
  13. PREDNISONE [Suspect]
     Indication: B-CELL LYMPHOMA
     Route: 048
     Dates: start: 20130404
  14. PREDNISONE [Suspect]
     Route: 048
     Dates: start: 20130520
  15. PREDNISONE [Suspect]
     Route: 048
     Dates: start: 20130614
  16. CIPROFLOXACIN [Concomitant]
     Indication: PRODUCT USED FOR UNKNOWN INDICATION
     Route: 065
     Dates: start: 20130320
  17. RANITIDINE [Concomitant]
     Indication: PREMEDICATION
     Route: 065
     Dates: start: 20130404
  18. PARACETAMOL [Concomitant]
     Indication: PRODUCT USED FOR UNKNOWN INDICATION
     Route: 065
     Dates: start: 20130404
  19. PARACETAMOL [Concomitant]
     Route: 065
     Dates: start: 20130606, end: 20130610
  20. PREDNISOLONE [Concomitant]
     Indication: PREMEDICATION
     Route: 065
     Dates: start: 20130404
  21. GRANISETRON HYDROCHLORIDE [Concomitant]
     Indication: PREMEDICATION
     Route: 065
     Dates: start: 20130404
  22. GRANISETRON HYDROCHLORIDE [Concomitant]
     Route: 065
     Dates: start: 20130606, end: 20130610
  23. APREPITANT [Concomitant]
     Indication: PREMEDICATION
     Route: 065
     Dates: start: 20130404
  24. RASBURICASE [Concomitant]
     Indication: PREMEDICATION
     Route: 065
     Dates: start: 20130404, end: 20130405
  25. MESNA [Concomitant]
     Indication: PRODUCT USED FOR UNKNOWN INDICATION
     Route: 065
     Dates: start: 20130404, end: 20130404

REACTIONS (3)
  - Infusion related reaction [Recovered/Resolved]
  - Neutropenia [Recovered/Resolved]
  - Neutropenia [Recovered/Resolved]
